FAERS Safety Report 11780883 (Version 2)
Quarter: 2015Q4

REPORT INFORMATION
  Report Type: Spontaneous
  Country: SE (occurrence: SE)
  Receive Date: 20151126
  Receipt Date: 20151210
  Transmission Date: 20160305
  Serious: Yes (Other)
  Sender: FDA-Public Use
  Company Number: SE-ACCORD-035645

PATIENT
  Age: 27 Year
  Sex: Female

DRUGS (3)
  1. FOLINIC ACID [Suspect]
     Active Substance: LEUCOVORIN
     Indication: ADENOCARCINOMA OF COLON
     Dates: start: 201302
  2. OXALIPLATIN. [Suspect]
     Active Substance: OXALIPLATIN
     Indication: ADENOCARCINOMA OF COLON
     Dates: start: 201302
  3. FLUOROURACIL. [Suspect]
     Active Substance: FLUOROURACIL
     Indication: ADENOCARCINOMA OF COLON
     Dates: start: 201302

REACTIONS (7)
  - Anaemia [Recovered/Resolved]
  - Pulmonary embolism [Recovered/Resolved]
  - Weight decreased [Unknown]
  - Thrombocytosis [Recovered/Resolved]
  - Treatment failure [Unknown]
  - Hypoalbuminaemia [Recovered/Resolved]
  - Infection [Recovered/Resolved]
